FAERS Safety Report 19159031 (Version 2)
Quarter: 2021Q2

REPORT INFORMATION
  Report Type: Spontaneous
  Country: US (occurrence: US)
  Receive Date: 20210420
  Receipt Date: 20210429
  Transmission Date: 20210717
  Serious: No
  Sender: FDA-Public Use
  Company Number: US-JNJFOC-20210424759

PATIENT
  Age: 75 Year
  Sex: Female
  Weight: 51.3 kg

DRUGS (6)
  1. LASIX [Concomitant]
     Active Substance: FUROSEMIDE
  2. AMBRISENTAN [Suspect]
     Active Substance: AMBRISENTAN
     Indication: SCLERODERMA
  3. AMBRISENTAN [Suspect]
     Active Substance: AMBRISENTAN
     Indication: PULMONARY HYPERTENSION
     Route: 048
     Dates: start: 20200130
  4. UPTRAVI [Suspect]
     Active Substance: SELEXIPAG
     Route: 065
  5. UPTRAVI [Suspect]
     Active Substance: SELEXIPAG
     Route: 065
  6. UPTRAVI [Suspect]
     Active Substance: SELEXIPAG
     Indication: PRODUCT USED FOR UNKNOWN INDICATION
     Route: 065
     Dates: start: 20201230

REACTIONS (12)
  - General physical health deterioration [Not Recovered/Not Resolved]
  - Feeling abnormal [Recovered/Resolved]
  - Diarrhoea [Unknown]
  - Weight decreased [Unknown]
  - Abdominal discomfort [Unknown]
  - Nausea [Not Recovered/Not Resolved]
  - Eructation [Unknown]
  - Decreased appetite [Not Recovered/Not Resolved]
  - Fatigue [Not Recovered/Not Resolved]
  - Taste disorder [Not Recovered/Not Resolved]
  - Dizziness [Unknown]
  - Asthenia [Not Recovered/Not Resolved]

NARRATIVE: CASE EVENT DATE: 20210114
